FAERS Safety Report 8223731-4 (Version None)
Quarter: 2012Q1

REPORT INFORMATION
  Report Type: 
  Country: None (occurrence: None)
  Receive Date: 20120321
  Receipt Date: 20120308
  Transmission Date: 20120608
  Serious: Yes (Hospitalization)
  Sender: FDA-Public Use
  Company Number: AU-JNJFOC-20120305405

PATIENT
  Sex: Female

DRUGS (3)
  1. FLAGYL [Suspect]
     Indication: PRODUCT USED FOR UNKNOWN INDICATION
  2. REMICADE [Suspect]
     Dosage: 5MG/KG  TOTAL DOSE ADMININSTERED: 2  INFUSION PERIOD: 2 HR
     Route: 042
     Dates: start: 20120130
  3. REMICADE [Suspect]
     Indication: CROHN'S DISEASE
     Route: 042
     Dates: start: 20120213

REACTIONS (3)
  - ABSCESS [None]
  - LETHARGY [None]
  - MALAISE [None]
